FAERS Safety Report 13193205 (Version 3)
Quarter: 2017Q2

REPORT INFORMATION
  Report Type: Report from Study
  Country: TW (occurrence: TW)
  Receive Date: 20170207
  Receipt Date: 20170403
  Transmission Date: 20170830
  Serious: Yes (Hospitalization)
  Sender: FDA-Public Use
  Company Number: TW-ASTELLAS-2017JP002164

PATIENT
  Age: 72 Year
  Sex: Male

DRUGS (4)
  1. ENZALUTAMIDE [Suspect]
     Active Substance: ENZALUTAMIDE
     Indication: HORMONE-REFRACTORY PROSTATE CANCER
     Route: 048
     Dates: start: 20161025
  2. CHLORZOXAZONE. [Concomitant]
     Active Substance: CHLORZOXAZONE
     Indication: MUSCULAR WEAKNESS
     Route: 048
     Dates: start: 20170117, end: 20170120
  3. PLACEBO [Suspect]
     Active Substance: UNSPECIFIED INGREDIENT
     Indication: HORMONE-REFRACTORY PROSTATE CANCER
     Route: 048
     Dates: start: 20141022, end: 20150310
  4. FENTANYL. [Concomitant]
     Active Substance: FENTANYL
     Indication: MUSCULAR WEAKNESS
     Dosage: 0.05 MG, ONCE DAILY
     Route: 030
     Dates: start: 20170115, end: 20170116

REACTIONS (2)
  - Tumour excision [Recovered/Resolved]
  - Spinal laminectomy [Recovered/Resolved]

NARRATIVE: CASE EVENT DATE: 20170124
